FAERS Safety Report 25504645 (Version 1)
Quarter: 2025Q3

REPORT INFORMATION
  Report Type: Spontaneous
  Country: US (occurrence: None)
  Receive Date: 20250702
  Receipt Date: 20250702
  Transmission Date: 20251020
  Serious: Yes (Hospitalization)
  Sender: FDA-CTU
  Company Number: None

PATIENT
  Age: 78 Year
  Sex: Male

DRUGS (6)
  1. VYALEV [Suspect]
     Active Substance: FOSCARBIDOPA\FOSLEVODOPA
     Indication: Parkinson^s disease
     Route: 058
     Dates: start: 20250318
  2. VIAL ADAPTER VENTED TRNSFR [Concomitant]
  3. RASAGILINE [Concomitant]
     Active Substance: RASAGILINE
  4. BUPROPION [Concomitant]
     Active Substance: BUPROPION
  5. BUPROPION [Suspect]
     Active Substance: BUPROPION
  6. RASAGILINE [Suspect]
     Active Substance: RASAGILINE

REACTIONS (2)
  - Confusional state [None]
  - Tremor [None]

NARRATIVE: CASE EVENT DATE: 20250613
